FAERS Safety Report 7265753-6 (Version None)
Quarter: 2011Q1

REPORT INFORMATION
  Report Type: 
  Country: None (occurrence: None)
  Receive Date: 20110131
  Receipt Date: 20110117
  Transmission Date: 20110831
  Serious: Yes (Hospitalization, Other)
  Sender: FDA-Public Use
  Company Number: US-ELI_LILLY_AND_COMPANY-US201101004351

PATIENT
  Sex: Female

DRUGS (3)
  1. PRIMIDONE [Concomitant]
     Dosage: UNK, UNKNOWN
  2. FORTEO [Suspect]
     Indication: OSTEOPOROSIS
     Dosage: 20 UG, DAILY (1/D)
     Dates: start: 20100223
  3. INDERAL [Concomitant]
     Indication: TREMOR
     Dosage: UNK, UNKNOWN

REACTIONS (1)
  - BREAST OPERATION [None]
